FAERS Safety Report 7349135-4 (Version None)
Quarter: 2011Q1

REPORT INFORMATION
  Report Type: 
  Country: None (occurrence: None)
  Receive Date: 20110314
  Receipt Date: 20110125
  Transmission Date: 20110831
  Serious: Yes (Death)
  Sender: FDA-Public Use
  Company Number: US-TYCO HEALTHCARE/MALLINCKRODT-T201100469

PATIENT
  Age: 32 Year
  Sex: Female

DRUGS (7)
  1. PHENOTHIAZINE [Suspect]
     Route: 048
  2. MIRTAZAPINE [Suspect]
     Route: 048
  3. CARISOPRODOL [Suspect]
     Route: 048
  4. PAMELOR [Suspect]
     Route: 048
  5. TIZANIDINE [Suspect]
     Route: 048
  6. ONDANSETRON [Suspect]
     Route: 048
  7. PROMETHAZINE [Suspect]
     Route: 048

REACTIONS (1)
  - DEATH [None]
